FAERS Safety Report 9467370 (Version 2)
Quarter: 2013Q3

REPORT INFORMATION
  Report Type: Spontaneous
  Country: DE (occurrence: DE)
  Receive Date: 20130821
  Receipt Date: 20130821
  Transmission Date: 20140515
  Serious: Yes (Other)
  Sender: FDA-Public Use
  Company Number: DE-BRISTOL-MYERS SQUIBB COMPANY-19183227

PATIENT
  Age: 61 Year
  Sex: Female

DRUGS (5)
  1. SPRYCEL [Suspect]
     Indication: CHRONIC MYELOID LEUKAEMIA
  2. ACETYLSALICYLIC ACID [Suspect]
  3. AMLODIPINE [Concomitant]
  4. VALSARTAN [Concomitant]
  5. PANTOZOL [Concomitant]

REACTIONS (4)
  - Intestinal haemorrhage [Not Recovered/Not Resolved]
  - Anorectal disorder [Not Recovered/Not Resolved]
  - Rectal haemorrhage [Not Recovered/Not Resolved]
  - Haemoglobin decreased [Not Recovered/Not Resolved]
